FAERS Safety Report 8803018 (Version 2)
Quarter: 2013Q1

REPORT INFORMATION
  Report Type: Spontaneous
  Country: US (occurrence: US)
  Receive Date: 20120924
  Receipt Date: 20130208
  Transmission Date: 20140127
  Serious: No
  Sender: FDA-Public Use
  Company Number: US-009507513-1208USA011378

PATIENT
  Age: 44 Year
  Sex: Female
  Weight: 158.73 kg

DRUGS (12)
  1. PEGINTRON [Suspect]
     Dosage: 150 MCG/0.5 ML
     Route: 058
     Dates: start: 20120614, end: 20121130
  2. PEGINTRON [Suspect]
     Dosage: 0.4 ML, QW
     Route: 058
     Dates: start: 20120614, end: 20121130
  3. REBETOL [Suspect]
     Dosage: 1000 (UNITS UNKNOWN)
     Route: 048
     Dates: start: 20120614, end: 20121130
  4. DYAZIDE [Concomitant]
  5. PHENERGAN (DIBROMPROPAMIDINE ISETHIONATE (+) PROMETHAZINE) [Concomitant]
     Dosage: UNK MG, UNK
  6. XANAX [Concomitant]
     Dosage: UNK MG, UNK
  7. AMBIEN [Concomitant]
     Dosage: UNK MG, UNK
  8. NORVASC [Concomitant]
     Dosage: UNK MG, UNK
  9. IBUPROFEN [Concomitant]
     Dosage: UNK MG, UNK
  10. LEXAPRO [Concomitant]
     Dosage: UNK MG, UNK
  11. ADVIL [Concomitant]
     Dosage: UNK MG, UNK
  12. VITAMINS (UNSPECIFIED) [Concomitant]

REACTIONS (9)
  - Vomiting [Unknown]
  - Fatigue [Unknown]
  - Diarrhoea [Recovered/Resolved]
  - Influenza like illness [Unknown]
  - Headache [Recovered/Resolved]
  - Decreased appetite [Unknown]
  - Dry mouth [Unknown]
  - Nausea [Recovered/Resolved]
  - Pain [Recovered/Resolved]
